FAERS Safety Report 5409096-1 (Version None)
Quarter: 2007Q3

REPORT INFORMATION
  Report Type: 
  Country: None (occurrence: None)
  Receive Date: 20070808
  Receipt Date: 20070801
  Transmission Date: 20080115
  Serious: Yes (Hospitalization)
  Sender: FDA-Public Use
  Company Number: DE-ABBOTT-07P-062-0376436-00

PATIENT
  Age: 66 Year
  Sex: Female

DRUGS (4)
  1. CYCLOSPORINE [Suspect]
     Indication: DRUG USE FOR UNKNOWN INDICATION
     Dates: start: 20060101
  2. CYCLOSPORINE [Suspect]
     Dates: start: 20040101, end: 20050101
  3. CYCLOSPORINE [Suspect]
     Dates: start: 20050101, end: 20050101
  4. HUMIRA [Suspect]
     Indication: DRUG USE FOR UNKNOWN INDICATION
     Route: 058
     Dates: start: 20040301, end: 20050801

REACTIONS (1)
  - PURULENT PERICARDITIS [None]
